FAERS Safety Report 11654852 (Version 2)
Quarter: 2015Q4

REPORT INFORMATION
  Report Type: Spontaneous
  Country: PT (occurrence: PT)
  Receive Date: 20151023
  Receipt Date: 20151110
  Transmission Date: 20160304
  Serious: Yes (Other)
  Sender: FDA-Public Use
  Company Number: PT-ACCORD-034682

PATIENT
  Age: 44 Year
  Sex: Male
  Weight: 65 kg

DRUGS (7)
  1. FLUOROURACIL ACCORD [Suspect]
     Active Substance: FLUOROURACIL
     Indication: RECTAL CANCER METASTATIC
     Dosage: 50 MG/ML, FOLFIRI + BEVACIZUMAB CYCLE
     Route: 042
     Dates: start: 20150713, end: 20150923
  2. IRINOTECAN HIKMA [Interacting]
     Active Substance: IRINOTECAN
     Indication: RECTAL CANCER METASTATIC
     Dosage: FOLFIRI + BEVACIZUMAB CYCLE
     Route: 042
     Dates: start: 20150713, end: 20150923
  3. ONDANSETRON [Concomitant]
     Active Substance: ONDANSETRON
     Dosage: 8MG/100ML, ALSO RECEIVED SAME MEDICATION WITH SAME DOSAGE
     Route: 042
  4. CALCIUM LEVOFOLINATE [Interacting]
     Active Substance: LEVOLEUCOVORIN CALCIUM
     Indication: RECTAL CANCER METASTATIC
     Dosage: FOLFIRI + BEVACIZUMAB CYCLE
     Route: 042
     Dates: start: 20150713, end: 20150923
  5. AVASTIN [Interacting]
     Active Substance: BEVACIZUMAB
     Indication: RECTAL CANCER METASTATIC
     Dosage: 25 MG/ML, FOLFIRI + BEVACIZUMAB CYCLE
     Route: 048
     Dates: start: 20150713, end: 20150923
  6. DEXAMETHASONE. [Concomitant]
     Active Substance: DEXAMETHASONE
     Dosage: 10MG/100ML
     Route: 042
  7. OXALIPLATIN KABI [Interacting]
     Active Substance: OXALIPLATIN
     Indication: RECTAL CANCER METASTATIC
     Dosage: 5 MG/ML, FOLFIRI + BEVACIZUMAB CYCLE
     Route: 042
     Dates: end: 20150923

REACTIONS (2)
  - Drug interaction [Unknown]
  - Hypertensive crisis [Recovering/Resolving]

NARRATIVE: CASE EVENT DATE: 20150922
